FAERS Safety Report 8596928-1 (Version None)
Quarter: 2012Q3

REPORT INFORMATION
  Report Type: 
  Country: None (occurrence: None)
  Receive Date: 20120815
  Receipt Date: 20120814
  Transmission Date: 20120928
  Serious: Yes (Other)
  Sender: FDA-Public Use
  Company Number: US-AMGEN-USASP2012048267

PATIENT
  Sex: Male

DRUGS (1)
  1. EPOGEN [Suspect]
     Indication: ANAEMIA
     Dosage: 7000 IU, 3 TIMES/WK

REACTIONS (3)
  - HYPERSENSITIVITY [None]
  - URTICARIA [None]
  - BLOOD PRESSURE DECREASED [None]
